FAERS Safety Report 14343753 (Version 1)
Quarter: 2018Q1

REPORT INFORMATION
  Report Type: Spontaneous
  Country: JP (occurrence: JP)
  Receive Date: 20180102
  Receipt Date: 20180102
  Transmission Date: 20180509
  Serious: Yes (Hospitalization, Other)
  Sender: FDA-Public Use
  Company Number: JP-PFIZER INC-2017552102

PATIENT
  Age: 84 Year
  Sex: Female
  Weight: 31.5 kg

DRUGS (6)
  1. LYRICA [Suspect]
     Active Substance: PREGABALIN
     Indication: PAIN
     Dosage: 150 MG, 1X/DAY
     Route: 048
     Dates: start: 20171029, end: 20171030
  2. OXYCODONE [Suspect]
     Active Substance: OXYCODONE
     Dosage: 15 MG, 2X/DAY
     Route: 048
     Dates: start: 20171029
  3. NOVAMIN /00013301/ [Concomitant]
     Active Substance: PROCHLORPERAZINE
     Dosage: 15 MG, DAILY
  4. MAGNESIUM OXIDE. [Concomitant]
     Active Substance: MAGNESIUM OXIDE
     Dosage: 1.5 G, DAILY
  5. CALONAL [Concomitant]
     Active Substance: ACETAMINOPHEN
     Dosage: 1600 MG, DAILY
  6. OXYCODONE [Suspect]
     Active Substance: OXYCODONE
     Indication: PAIN
     Dosage: 20 MG, DAILY
     Route: 048

REACTIONS (2)
  - Somnolence [Recovered/Resolved]
  - Respiratory depression [Recovered/Resolved]

NARRATIVE: CASE EVENT DATE: 20171030
